FAERS Safety Report 9026124 (Version 1)
Quarter: 2013Q1

REPORT INFORMATION
  Report Type: Spontaneous
  Country: FR (occurrence: None)
  Receive Date: 20130107
  Receipt Date: 20130107
  Transmission Date: 20140127
  Serious: Yes (Hospitalization)
  Sender: FDA-Public Use
  Company Number: 7183901

PATIENT
  Age: 87 Year
  Sex: Female

DRUGS (12)
  1. PREVISCAN (FLUINDIONE) [Suspect]
     Dosage: 1 DF IN ALTERNANCE
     Route: 048
     Dates: end: 20120828
  2. LEVOTHYROX [Suspect]
     Route: 048
  3. PARACETAMOL (PARACETAMOL) [Suspect]
     Route: 048
  4. DIFFU K(POTASSIUM CHLORIDE) [Concomitant]
  5. TARDYFERON (FERROUS SULFATE) [Concomitant]
  6. UVEDOSE (COLECALCIFEROL) [Concomitant]
  7. ACTISKENAN (MORPHINE SULFATE) [Concomitant]
  8. ALPRAZOLAM (ALPRAZOLAM) [Concomitant]
  9. AMIODARONE (AMIODARONE HYDROCHLORIDE) [Concomitant]
  10. CARDENSIEL 5 MG(BISOPROLOL FUMARATE) [Concomitant]
  11. LANTUS (INSULIN GLARGINE) [Concomitant]
  12. RISPERDAL (RISPERIDONE) [Concomitant]

REACTIONS (3)
  - Haematoma [None]
  - Drug interaction [None]
  - Disorientation [None]
